FAERS Safety Report 25869689 (Version 1)
Quarter: 2025Q4

REPORT INFORMATION
  Report Type: Spontaneous
  Country: US (occurrence: US)
  Receive Date: 20251001
  Receipt Date: 20251001
  Transmission Date: 20260117
  Serious: No
  Sender: BAYER HEALTHCARE PHARMACEUTICALS INC.
  Company Number: US-BAYER-2025A126532

PATIENT
  Age: 81 Year
  Sex: Male

DRUGS (18)
  1. NUBEQA [Suspect]
     Active Substance: DAROLUTAMIDE
     Indication: Product use in unapproved indication
     Dosage: UNK
  2. NUBEQA [Suspect]
     Active Substance: DAROLUTAMIDE
     Indication: Product use in unapproved indication
     Dosage: UNK
  3. ORGOVYX [Suspect]
     Active Substance: RELUGOLIX
     Indication: Prostate cancer
     Dosage: UNK
     Route: 048
  4. ORGOVYX [Suspect]
     Active Substance: RELUGOLIX
     Indication: Prostate cancer
     Dosage: 120 MG, QD
     Route: 048
  5. LOPERAMIDE HYDROCHLORIDE [Concomitant]
     Active Substance: LOPERAMIDE HYDROCHLORIDE
     Dosage: 2MG
  6. METFORMIN HYDROCHLORIDE [Concomitant]
     Active Substance: METFORMIN HYDROCHLORIDE
  7. PANTOPRAZOLE SODIUM [Concomitant]
     Active Substance: PANTOPRAZOLE SODIUM
  8. VITAMIN B12 [Concomitant]
     Active Substance: CYANOCOBALAMIN
  9. VITAMIN C [Concomitant]
     Active Substance: ASCORBIC ACID
  10. ASPIRIN [Concomitant]
     Active Substance: ASPIRIN
  11. CALCIUM CARBONATE\VITAMIN D [Concomitant]
     Active Substance: CALCIUM CARBONATE\VITAMIN D
  12. JARDIANCE [Concomitant]
     Active Substance: EMPAGLIFLOZIN
  13. ELIQUIS [Concomitant]
     Active Substance: APIXABAN
  14. LISINOPRIL [Concomitant]
     Active Substance: LISINOPRIL
  15. OXYBUTYNIN [Concomitant]
     Active Substance: OXYBUTYNIN
  16. ALIGN [Concomitant]
     Active Substance: BIFIDOBACTERIUM LONGUM SUBSP. INFANTIS
  17. ATORVASTATIN [Concomitant]
     Active Substance: ATORVASTATIN
  18. MINERALS\VITAMINS [Concomitant]
     Active Substance: MINERALS\VITAMINS

REACTIONS (7)
  - Arthropod sting [Unknown]
  - Swelling [Unknown]
  - Pruritus [Unknown]
  - Memory impairment [Unknown]
  - Night sweats [Unknown]
  - Hot flush [Unknown]
  - Product dose omission issue [None]

NARRATIVE: CASE EVENT DATE: 20250812
